FAERS Safety Report 4347882-X (Version None)
Quarter: 2004Q2

REPORT INFORMATION
  Report Type: 
  Country: None (occurrence: None)
  Receive Date: 20040422
  Receipt Date: 20040414
  Transmission Date: 20050107
  Serious: Yes (Death)
  Sender: FDA-Public Use
  Company Number: USA-2004-0014566

PATIENT
  Age: 87 Year
  Sex: Female
  Weight: 71.2 kg

DRUGS (4)
  1. MORPHINE SULFATE [Suspect]
  2. PROMETHAZINE [Suspect]
  3. FLUOXETINE [Suspect]
  4. PROPOXYPHENE HCL [Suspect]

REACTIONS (11)
  - AORTIC ATHEROSCLEROSIS [None]
  - ASCITES [None]
  - ATHEROSCLEROSIS [None]
  - CARDIOMEGALY [None]
  - CORONARY ARTERY ATHEROSCLEROSIS [None]
  - DRUG TOXICITY [None]
  - FEMORAL NECK FRACTURE [None]
  - HYPERTENSION [None]
  - NEPHROSCLEROSIS [None]
  - OVERDOSE [None]
  - PLEURAL EFFUSION [None]
